FAERS Safety Report 6325060-2 (Version None)
Quarter: 2009Q3

REPORT INFORMATION
  Report Type: 
  Country: None (occurrence: None)
  Receive Date: 20090824
  Receipt Date: 20090713
  Transmission Date: 20100115
  Serious: No
  Sender: FDA-Public Use
  Company Number: US-ABBOTT-09P-163-0585069-00

PATIENT
  Sex: Male
  Weight: 132.11 kg

DRUGS (15)
  1. NIASPAN [Suspect]
     Indication: LOW DENSITY LIPOPROTEIN INCREASED
     Dosage: 500MG QHS
     Dates: start: 20090701
  2. NIASPAN [Suspect]
     Indication: HIGH DENSITY LIPOPROTEIN DECREASED
  3. NIASPAN [Suspect]
     Indication: BLOOD CHOLESTEROL INCREASED
  4. SYNTHROID [Concomitant]
     Indication: DRUG USE FOR UNKNOWN INDICATION
  5. CYTOMEL [Concomitant]
     Indication: DRUG USE FOR UNKNOWN INDICATION
  6. FUROSEMIDE [Concomitant]
     Indication: DRUG USE FOR UNKNOWN INDICATION
  7. GLYBURIDE [Concomitant]
     Indication: DRUG USE FOR UNKNOWN INDICATION
  8. METFORMIN HCL [Concomitant]
     Indication: DRUG USE FOR UNKNOWN INDICATION
  9. JANUVIA [Concomitant]
     Indication: DRUG USE FOR UNKNOWN INDICATION
  10. CYMBALTA [Concomitant]
     Indication: DRUG USE FOR UNKNOWN INDICATION
  11. WELLBUTRIN [Concomitant]
     Indication: DRUG USE FOR UNKNOWN INDICATION
  12. LOVAZA [Concomitant]
     Indication: DRUG USE FOR UNKNOWN INDICATION
  13. NEXIUM [Concomitant]
     Indication: DRUG USE FOR UNKNOWN INDICATION
  14. TRICOR [Concomitant]
     Indication: DRUG USE FOR UNKNOWN INDICATION
  15. ASPIRIN [Concomitant]
     Indication: DRUG USE FOR UNKNOWN INDICATION

REACTIONS (2)
  - BLOOD GLUCOSE INCREASED [None]
  - FLUSHING [None]
